FAERS Safety Report 24166626 (Version 1)
Quarter: 2024Q3

REPORT INFORMATION
  Report Type: Spontaneous
  Country: IT (occurrence: IT)
  Receive Date: 20240802
  Receipt Date: 20240802
  Transmission Date: 20241016
  Serious: Yes (Other)
  Sender: RANBAXY
  Company Number: IT-SUN PHARMACEUTICAL INDUSTRIES LTD-2024R1-458534

PATIENT
  Age: 73 Year
  Sex: Female

DRUGS (3)
  1. SODIUM CHLORIDE [Suspect]
     Active Substance: SODIUM CHLORIDE
     Indication: Polyglandular autoimmune syndrome type II
     Dosage: UNKNOWN
     Route: 065
  2. HYDROCORTISONE [Suspect]
     Active Substance: HYDROCORTISONE\HYDROCORTISONE ACETATE
     Indication: Polyglandular autoimmune syndrome type II
     Dosage: UNKNOWN
     Route: 042
  3. FLUDROCORTISONE [Suspect]
     Active Substance: FLUDROCORTISONE
     Indication: Polyglandular autoimmune syndrome type II
     Dosage: UNKNOWN
     Route: 065

REACTIONS (2)
  - Right ventricular failure [Unknown]
  - Hypokalaemia [Unknown]
